FAERS Safety Report 21349470 (Version 3)
Quarter: 2022Q4

REPORT INFORMATION
  Report Type: Spontaneous
  Country: FR (occurrence: FR)
  Receive Date: 20220919
  Receipt Date: 20221208
  Transmission Date: 20230113
  Serious: Yes (Other)
  Sender: FDA-Public Use
  Company Number: FR-AFSSAPS-TS20221997

PATIENT
  Age: 34 Year
  Sex: Female
  Weight: 51 kg

DRUGS (1)
  1. KENACORT [Suspect]
     Active Substance: TRIAMCINOLONE
     Indication: Allergy to plants
     Dosage: 1 INJECTION?INJECTABLE SUSPENSION
     Route: 030
     Dates: start: 20220516, end: 20220516

REACTIONS (6)
  - Injection site muscle atrophy [Not Recovered/Not Resolved]
  - Depression [Unknown]
  - Insomnia [Unknown]
  - Fatigue [Unknown]
  - Anxiety [Unknown]
  - Loss of libido [Unknown]

NARRATIVE: CASE EVENT DATE: 20220903
